FAERS Safety Report 5146690-X (Version None)
Quarter: 2006Q4

REPORT INFORMATION
  Report Type: 
  Country: None (occurrence: None)
  Receive Date: 20061109
  Receipt Date: 20050908
  Transmission Date: 20070319
  Serious: Yes (Death, Hospitalization)
  Sender: FDA-Public Use
  Company Number: US-ROCHE-417014

PATIENT
  Age: 75 Year
  Sex: Female
  Weight: 115.1 kg

DRUGS (12)
  1. TOCILIZUMAB [Suspect]
     Indication: RHEUMATOID ARTHRITIS
     Route: 042
     Dates: start: 20050727
  2. NAPROXEN [Concomitant]
     Dates: start: 20050528
  3. FUROSEMIDE [Concomitant]
     Dates: start: 19890615
  4. PRAVASTATIN [Concomitant]
     Dates: start: 20010801
  5. ASPIRIN [Concomitant]
     Dates: start: 20010912
  6. AMLODIPINE [Concomitant]
     Dates: start: 20020615
  7. METOPROLOL TARTRATE [Concomitant]
     Dates: start: 20021109
  8. FELODIPINE [Concomitant]
     Dates: start: 20020715
  9. FLUVASTATIN SODIUM [Concomitant]
     Dates: start: 20020715
  10. LISINOPRIL [Concomitant]
     Dates: start: 20031217
  11. METFORMIN HCL [Concomitant]
     Dates: start: 20050501
  12. GLYBURIDE [Concomitant]
     Dates: start: 20050501

REACTIONS (3)
  - CORONARY ARTERY DISEASE [None]
  - MEDIASTINITIS [None]
  - SEPSIS [None]
